FAERS Safety Report 18473058 (Version 1)
Quarter: 2020Q4

REPORT INFORMATION
  Report Type: Report from Study
  Country: GB (occurrence: GB)
  Receive Date: 20201106
  Receipt Date: 20201106
  Transmission Date: 20210114
  Serious: Yes (Other)
  Sender: FDA-Public Use
  Company Number: GB-MYLANLABS-2020M1092865

PATIENT
  Sex: Female

DRUGS (9)
  1. STAVUDINE. [Suspect]
     Active Substance: STAVUDINE
     Indication: PERINATAL HIV INFECTION
     Route: 065
     Dates: start: 1997
  2. LAMIVUDINE. [Suspect]
     Active Substance: LAMIVUDINE
     Indication: PERINATAL HIV INFECTION
     Route: 065
     Dates: start: 1997
  3. TENOFOVIR DISOPROXIL [Suspect]
     Active Substance: TENOFOVIR DISOPROXIL
     Indication: PERINATAL HIV INFECTION
     Route: 065
     Dates: start: 1997
  4. ZIDOVUDINE. [Suspect]
     Active Substance: ZIDOVUDINE
     Indication: PERINATAL HIV INFECTION
     Route: 065
     Dates: start: 1997
  5. NELFINAVIR [Suspect]
     Active Substance: NELFINAVIR
     Indication: PERINATAL HIV INFECTION
     Route: 065
     Dates: start: 1997
  6. DIDANOSINE. [Suspect]
     Active Substance: DIDANOSINE
     Indication: PERINATAL HIV INFECTION
     Route: 065
     Dates: start: 1997
  7. LOPINAVIR/RITONAVIR [Suspect]
     Active Substance: LOPINAVIR\RITONAVIR
     Indication: PERINATAL HIV INFECTION
     Route: 065
     Dates: start: 1997
  8. ABACAVIR. [Suspect]
     Active Substance: ABACAVIR
     Indication: PERINATAL HIV INFECTION
     Route: 065
     Dates: start: 1997
  9. EFAVIRENZ. [Suspect]
     Active Substance: EFAVIRENZ
     Indication: PERINATAL HIV INFECTION
     Route: 065
     Dates: start: 1997

REACTIONS (4)
  - Infertility [Unknown]
  - Delayed puberty [Unknown]
  - Amenorrhoea [Unknown]
  - Ovarian failure [Unknown]
